FAERS Safety Report 6373445-0 (Version None)
Quarter: 2009Q3

REPORT INFORMATION
  Report Type: 
  Country: None (occurrence: None)
  Receive Date: 20090924
  Receipt Date: 20090310
  Transmission Date: 20100115
  Serious: No
  Sender: FDA-Public Use
  Company Number: US-ASTRAZENECA-2009UW06389

PATIENT
  Sex: Female
  Weight: 63.5 kg

DRUGS (8)
  1. SEROQUEL [Suspect]
     Indication: SLEEP DISORDER
     Route: 048
     Dates: start: 20060101
  2. SEROQUEL [Suspect]
     Indication: TACHYPHRENIA
     Route: 048
     Dates: start: 20060101
  3. ATENOLOL [Concomitant]
     Dates: start: 20080101
  4. PROPRANOLOL [Concomitant]
     Dates: end: 20080101
  5. MELATONIN [Concomitant]
  6. ASPIRIN [Concomitant]
  7. NITROFURANTOIN [Concomitant]
  8. MULTI-VITAMIN [Concomitant]

REACTIONS (2)
  - CYSTITIS [None]
  - SUPRAVENTRICULAR EXTRASYSTOLES [None]
